FAERS Safety Report 9313702 (Version 1)
Quarter: 2013Q2

REPORT INFORMATION
  Report Type: Spontaneous
  Country: IL (occurrence: IL)
  Receive Date: 20130529
  Receipt Date: 20130529
  Transmission Date: 20140414
  Serious: Yes (Disabling)
  Sender: FDA-Public Use
  Company Number: IL-009507513-1305ISR008070

PATIENT
  Age: 32 Year
  Sex: Male

DRUGS (1)
  1. PROPECIA [Suspect]
     Indication: ALOPECIA
     Dosage: 1 MG, QD
     Route: 048
     Dates: start: 20121009

REACTIONS (3)
  - Penile pain [Unknown]
  - Ejaculation disorder [Unknown]
  - Semen volume decreased [Unknown]
